FAERS Safety Report 6921832-1 (Version None)
Quarter: 2010Q3

REPORT INFORMATION
  Report Type: 
  Country: None (occurrence: None)
  Receive Date: 20100812
  Receipt Date: 20100805
  Transmission Date: 20110219
  Serious: Yes (Other)
  Sender: FDA-Public Use
  Company Number: VE-ABBOTT-10P-178-0662150-00

PATIENT
  Age: 19 Year
  Sex: Female

DRUGS (1)
  1. HUMIRA [Suspect]
     Indication: JUVENILE ARTHRITIS
     Dosage: 1 PRE-FILLED SYRINGE (40MG-0.8ML)
     Route: 058
     Dates: start: 20090101, end: 20100701

REACTIONS (1)
  - DIARRHOEA [None]
